FAERS Safety Report 11419048 (Version 1)
Quarter: 2015Q3

REPORT INFORMATION
  Report Type: Report from Study
  Country: US (occurrence: US)
  Receive Date: 20150826
  Receipt Date: 20150826
  Transmission Date: 20151125
  Serious: Yes (Other)
  Sender: FDA-Public Use
  Company Number: PHEH2015US016161

PATIENT
  Age: 9 Year
  Sex: Male

DRUGS (6)
  1. SABRIL [Concomitant]
     Active Substance: VIGABATRIN
     Indication: PRODUCT USED FOR UNKNOWN INDICATION
     Route: 065
  2. L-LYSINE [Concomitant]
     Active Substance: LYSINE
     Indication: PRODUCT USED FOR UNKNOWN INDICATION
     Route: 065
  3. FYCOMPA [Concomitant]
     Active Substance: PERAMPANEL
     Indication: PRODUCT USED FOR UNKNOWN INDICATION
     Route: 065
  4. AFINITOR [Suspect]
     Active Substance: EVEROLIMUS
     Indication: GANGLIOGLIOMA
     Dosage: 10 MG, QD
     Route: 048
     Dates: start: 20130922, end: 201508
  5. TAURINE [Concomitant]
     Active Substance: TAURINE
     Indication: PRODUCT USED FOR UNKNOWN INDICATION
     Route: 065
  6. VIGABATRIN [Concomitant]
     Active Substance: VIGABATRIN
     Indication: PRODUCT USED FOR UNKNOWN INDICATION
     Route: 065

REACTIONS (2)
  - Seizure [Recovering/Resolving]
  - Upper limb fracture [Recovering/Resolving]

NARRATIVE: CASE EVENT DATE: 20150705
